FAERS Safety Report 23680355 (Version 1)
Quarter: 2024Q1

REPORT INFORMATION
  Report Type: Spontaneous
  Country: AT (occurrence: AT)
  Receive Date: 20240328
  Receipt Date: 20240328
  Transmission Date: 20240410
  Serious: Yes (Other)
  Sender: FDA-Public Use
  Company Number: AT-AMGEN-AUTSP2024058892

PATIENT
  Age: 29 Year
  Sex: Female

DRUGS (2)
  1. NPLATE [Suspect]
     Active Substance: ROMIPLOSTIM
     Indication: Immune thrombocytopenia
     Dosage: 8 MICROGRAM/KILOGRAM
     Route: 065
     Dates: start: 202308
  2. NPLATE [Suspect]
     Active Substance: ROMIPLOSTIM
     Dosage: 10 MICROGRAM/KILOGRAM
     Route: 065

REACTIONS (6)
  - Thrombocytopenia [Unknown]
  - Platelet count increased [Unknown]
  - Basophil count increased [Unknown]
  - Red blood cell count increased [Unknown]
  - Red cell distribution width increased [Unknown]
  - Stress [Unknown]

NARRATIVE: CASE EVENT DATE: 20230801
